FAERS Safety Report 21782905 (Version 1)
Quarter: 2022Q4

REPORT INFORMATION
  Report Type: Report from Study
  Country: US (occurrence: US)
  Receive Date: 20221227
  Receipt Date: 20221227
  Transmission Date: 20230113
  Serious: No
  Sender: FDA-Public Use
  Company Number: US-ABBVIE-22K-163-4272113-00

PATIENT
  Sex: Female

DRUGS (3)
  1. HUMIRA [Suspect]
     Active Substance: ADALIMUMAB
     Indication: Hidradenitis
     Dosage: TIME INTERVAL: 1 TOTAL: DAY 1, STRENGHT:80MG
     Route: 058
     Dates: start: 20220206, end: 20220206
  2. HUMIRA [Suspect]
     Active Substance: ADALIMUMAB
     Dosage: TIME INTERVAL: 1 TOTAL: DAY 15
     Route: 058
     Dates: start: 20220220, end: 20220220
  3. HUMIRA [Suspect]
     Active Substance: ADALIMUMAB
     Dosage: DIFFICULTIES IN INTIMACY WITH PARTNER, ITCHY SKIN AND SORE/PAINFUL/STINGING SKIN ONSET WAS FEB 20...
     Route: 058
     Dates: start: 20221106

REACTIONS (4)
  - Pruritus [Not Recovered/Not Resolved]
  - Skin disorder [Unknown]
  - Pain of skin [Not Recovered/Not Resolved]
  - Unevaluable event [Not Recovered/Not Resolved]
